FAERS Safety Report 19043602 (Version 1)
Quarter: 2021Q1

REPORT INFORMATION
  Report Type: Spontaneous
  Country: US (occurrence: US)
  Receive Date: 20210323
  Receipt Date: 20210323
  Transmission Date: 20210420
  Serious: No
  Sender: FDA-Public Use
  Company Number: None

PATIENT
  Age: 42 Year
  Sex: Male

DRUGS (1)
  1. SINEQUAN [Suspect]
     Active Substance: DOXEPIN HYDROCHLORIDE

REACTIONS (1)
  - Therapy non-responder [None]

NARRATIVE: CASE EVENT DATE: 20210323
